FAERS Safety Report 11971872 (Version 1)
Quarter: 2016Q1

REPORT INFORMATION
  Report Type: Spontaneous
  Country: US (occurrence: US)
  Receive Date: 20160128
  Receipt Date: 20160128
  Transmission Date: 20160526
  Serious: Yes (Hospitalization, Other)
  Sender: FDA-Public Use
  Company Number: US-PFIZER INC-2016025205

PATIENT
  Age: 3 Year
  Sex: Female

DRUGS (2)
  1. CHAPSTICK LIP BALM [Suspect]
     Active Substance: ISOPROPYL MYRISTATE
     Dosage: UNK
     Route: 048
     Dates: start: 20160115
  2. AMPHETAMINE [Suspect]
     Active Substance: AMPHETAMINE

REACTIONS (7)
  - Amphetamines positive [Unknown]
  - Pallor [Recovered/Resolved]
  - Lethargy [Not Recovered/Not Resolved]
  - Accidental exposure to product by child [Unknown]
  - Heart rate decreased [Recovered/Resolved]
  - Oxygen saturation decreased [Recovered/Resolved]
  - Incoherent [Not Recovered/Not Resolved]

NARRATIVE: CASE EVENT DATE: 20160115
